FAERS Safety Report 15019940 (Version 1)
Quarter: 2018Q2

REPORT INFORMATION
  Report Type: Report from Study
  Country: AU (occurrence: AU)
  Receive Date: 20180618
  Receipt Date: 20180618
  Transmission Date: 20180711
  Serious: No
  Sender: FDA-Public Use
  Company Number: AU-ROCHE-2141244

PATIENT
  Sex: Female

DRUGS (1)
  1. OCREVUS [Suspect]
     Active Substance: OCRELIZUMAB
     Indication: RELAPSING-REMITTING MULTIPLE SCLEROSIS
     Dosage: 1A ?1B INFUSION ON 16 MAY 2018
     Route: 041
     Dates: start: 20180502

REACTIONS (1)
  - Lower respiratory tract infection [Recovered/Resolved]
